FAERS Safety Report 10196991 (Version 2)
Quarter: 2014Q2

REPORT INFORMATION
  Report Type: Spontaneous
  Country: BE (occurrence: BE)
  Receive Date: 20140527
  Receipt Date: 20140605
  Transmission Date: 20141212
  Serious: Yes (Death, Hospitalization)
  Sender: FDA-Public Use
  Company Number: BE-ABBVIE-14P-013-1240568-00

PATIENT
  Sex: Male

DRUGS (2)
  1. HUMIRA [Suspect]
     Indication: PUSTULAR PSORIASIS
  2. HUMIRA [Suspect]
     Indication: PSORIASIS
     Dates: start: 201404

REACTIONS (5)
  - Renal failure [Fatal]
  - Infection [Fatal]
  - Dermatitis exfoliative [Unknown]
  - Pyrexia [Unknown]
  - Psoriasis [Unknown]
